FAERS Safety Report 10237278 (Version 2)
Quarter: 2014Q3

REPORT INFORMATION
  Report Type: Spontaneous
  Country: US (occurrence: US)
  Receive Date: 20140613
  Receipt Date: 20140715
  Transmission Date: 20150326
  Serious: No
  Sender: FDA-Public Use
  Company Number: US-PFIZER INC-2014163962

PATIENT
  Age: 58 Year
  Sex: Female
  Weight: 49.43 kg

DRUGS (4)
  1. LYRICA [Suspect]
     Active Substance: PREGABALIN
     Indication: NEURALGIA
     Dosage: 75 MG, 1X/DAY
     Route: 048
     Dates: start: 20131204, end: 20140426
  2. LYRICA [Suspect]
     Active Substance: PREGABALIN
     Dosage: UNK, SPLIT THE DOSE OF LYRICA BY DISSOLVING IT AND TAKING HALF IN THE MORNING AND HALF AT NIGHT
     Route: 048
     Dates: start: 20140426, end: 20140429
  3. LYRICA [Suspect]
     Active Substance: PREGABALIN
     Dosage: 75 MG, 1X/DAY
     Route: 048
     Dates: start: 20140429
  4. IBUPROFEN. [Concomitant]
     Active Substance: IBUPROFEN
     Dosage: UNK

REACTIONS (2)
  - Intentional product misuse [Recovered/Resolved]
  - Tremor [Unknown]

NARRATIVE: CASE EVENT DATE: 201404
